FAERS Safety Report 10584441 (Version 3)
Quarter: 2015Q1

REPORT INFORMATION
  Report Type: Spontaneous
  Country: CA (occurrence: None)
  Receive Date: 20141112
  Receipt Date: 20150311
  Transmission Date: 20150720
  Serious: Yes (Life-Threatening, Hospitalization, Other)
  Sender: FDA-Public Use
  Company Number: AMAG201400422

PATIENT
  Age: 69 Year
  Sex: Male
  Weight: 100.7 kg

DRUGS (14)
  1. LIPITOR [Concomitant]
     Active Substance: ATORVASTATIN CALCIUM
  2. MAVIK (TRANDOLAPRIL) [Concomitant]
  3. PANTOLOC (PANTOPRAZOLE SODIUM SESQUIHYDRATE) [Concomitant]
  4. MONOCOR (BISOPROLOL FUMARATE) [Concomitant]
  5. DIAMICRON (GLICLAZIDE) [Concomitant]
     Active Substance: GLICLAZIDE
  6. VENTOLIN [Concomitant]
     Active Substance: ALBUTEROL SULFATE
  7. ELIQUIS [Concomitant]
     Active Substance: APIXABAN
  8. CAL-D (CALCIUM CARBONATE, COLECALCIFEROL) [Concomitant]
  9. ADVAIR DISKUS [Concomitant]
     Active Substance: FLUTICASONE PROPIONATE\SALMETEROL XINAFOATE
  10. FERAHEME [Suspect]
     Active Substance: FERUMOXYTOL NON-STOICHIOMETRIC MAGNETITE
     Indication: IRON DEFICIENCY ANAEMIA
     Dosage: 510 MG, SINGLE, INTRAVENOUS
     Route: 042
     Dates: start: 20140918, end: 20140918
  11. LASIX [Concomitant]
     Active Substance: FUROSEMIDE
  12. METFORMIN [Concomitant]
     Active Substance: METFORMIN HYDROCHLORIDE
  13. DIGOXIN (BETA-ACETYLDIGOXIN) [Concomitant]
  14. FLOMAX LA (MORNIFLUMATE) [Concomitant]

REACTIONS (9)
  - Speech disorder [None]
  - Heart rate increased [None]
  - Anaphylactic shock [None]
  - Anxiety [None]
  - Blood pressure decreased [None]
  - Face oedema [None]
  - Oxygen saturation [None]
  - Hyperglycaemia [None]
  - Bronchospasm [None]

NARRATIVE: CASE EVENT DATE: 20140918
